FAERS Safety Report 24269246 (Version 1)
Quarter: 2024Q3

REPORT INFORMATION
  Report Type: Spontaneous
  Country: US (occurrence: US)
  Receive Date: 20240830
  Receipt Date: 20240830
  Transmission Date: 20241017
  Serious: Yes (Other)
  Sender: SEPTODONT
  Company Number: US-SEPTODONT-2024018933

PATIENT

DRUGS (2)
  1. ARTICAINE HYDROCHLORIDE\EPINEPHRINE BITARTRATE [Suspect]
     Active Substance: ARTICAINE HYDROCHLORIDE\EPINEPHRINE BITARTRATE
     Indication: Dental local anaesthesia
     Route: 004
  2. DEVICE [Suspect]
     Active Substance: DEVICE
     Indication: Dental local anaesthesia

REACTIONS (7)
  - Necrosis [Unknown]
  - Heart rate increased [Unknown]
  - Procedural pain [Unknown]
  - Contusion [Unknown]
  - Swelling [Unknown]
  - Dental discomfort [Unknown]
  - Needle issue [Unknown]
